FAERS Safety Report 19285827 (Version 1)
Quarter: 2021Q2

REPORT INFORMATION
  Report Type: Report from Study
  Country: US (occurrence: US)
  Receive Date: 20210521
  Receipt Date: 20210521
  Transmission Date: 20210717
  Serious: Yes (Death, Hospitalization)
  Sender: FDA-Public Use
  Company Number: US-ROCHE-2746445

PATIENT
  Age: 82 Year
  Sex: Female
  Weight: 63.2 kg

DRUGS (4)
  1. ATEZOLIZUMAB. [Suspect]
     Active Substance: ATEZOLIZUMAB
     Indication: MALIGNANT GENITOURINARY TRACT NEOPLASM
  2. ATEZOLIZUMAB. [Suspect]
     Active Substance: ATEZOLIZUMAB
     Indication: BLADDER CANCER
  3. CISPLATIN. [Suspect]
     Active Substance: CISPLATIN
     Indication: BLADDER CANCER
     Dosage: IV WEEKLY FOR SIX WEEKS?ON 17/AUG/2020, SHE RECEIVED MOST RECENT DOSE OF CISPLATIN PRIOR TO ONSET OF
     Route: 042
     Dates: start: 20200713
  4. ATEZOLIZUMAB. [Suspect]
     Active Substance: ATEZOLIZUMAB
     Indication: BLADDER CANCER
     Dosage: ON 07/DEC/2020, RECEIVED MOST RECENT DOSE OF ATEZOLIZUMAB PRIOR TO ONSET OF SERIOUS ADVERSE EVENT.
     Route: 041
     Dates: start: 20200713

REACTIONS (3)
  - Skin ulcer [Not Recovered/Not Resolved]
  - Metabolic encephalopathy [Fatal]
  - Gangrene [Not Recovered/Not Resolved]

NARRATIVE: CASE EVENT DATE: 20201228
